FAERS Safety Report 11920391 (Version 4)
Quarter: 2016Q1

REPORT INFORMATION
  Report Type: Report from Study
  Country: AL (occurrence: AL)
  Receive Date: 20160115
  Receipt Date: 20160324
  Transmission Date: 20160526
  Serious: Yes (Life-Threatening)
  Sender: FDA-Public Use
  Company Number: AL-APOPHARMA USA, INC.-2016AP005211

PATIENT
  Age: 3 Year
  Sex: Female
  Weight: 16 kg

DRUGS (2)
  1. DEFERIPRONE [Suspect]
     Active Substance: DEFERIPRONE
     Indication: IRON OVERLOAD
  2. DEFERIPRONE [Suspect]
     Active Substance: DEFERIPRONE
     Indication: THALASSAEMIA BETA
     Dosage: 25 MG/KG, TID
     Route: 048
     Dates: start: 20150930, end: 20151230

REACTIONS (1)
  - Agranulocytosis [Recovered/Resolved]

NARRATIVE: CASE EVENT DATE: 20151230
